FAERS Safety Report 10089486 (Version 1)
Quarter: 2014Q2

REPORT INFORMATION
  Report Type: Spontaneous
  Country: GB (occurrence: None)
  Receive Date: 20140417
  Receipt Date: 20140417
  Transmission Date: 20141212
  Serious: Yes (Life-Threatening, Hospitalization)
  Sender: FDA-Public Use
  Company Number: 2014P1003265

PATIENT
  Age: 68 Year
  Sex: Female

DRUGS (9)
  1. HYDROXYCHLOROQUINE [Suspect]
     Indication: RHEUMATOID ARTHRITIS
     Route: 048
     Dates: start: 20140305, end: 20140313
  2. CHLORPHENAMINE [Concomitant]
  3. CLEXANE [Concomitant]
  4. FERROUS FUMARATE [Concomitant]
  5. BECLOMETASONE/FENOTEROL [Concomitant]
  6. LEVOTHYROXINE [Concomitant]
  7. OXYBUTYNIN [Concomitant]
  8. RANITIDINE [Concomitant]
  9. TAZOCIN [Concomitant]

REACTIONS (3)
  - Infection [None]
  - Renal failure acute [None]
  - Neutropenic sepsis [None]
